FAERS Safety Report 26162631 (Version 1)
Quarter: 2025Q4

REPORT INFORMATION
  Report Type: Report from Study
  Country: GB (occurrence: GB)
  Receive Date: 20251216
  Receipt Date: 20251216
  Transmission Date: 20260117
  Serious: Yes (Hospitalization)
  Sender: ABBVIE
  Company Number: GB-ABBVIE-6587363

PATIENT
  Sex: Female

DRUGS (1)
  1. RINVOQ [Suspect]
     Active Substance: UPADACITINIB
     Indication: Rheumatoid arthritis
     Dosage: FORM STRENGTH: 15 MG, 28 TABLET 4 X 7 TABLETS
     Route: 048

REACTIONS (3)
  - Neoplasm malignant [Unknown]
  - Oesophageal stenosis [Unknown]
  - Product use complaint [Unknown]
